FAERS Safety Report 18970630 (Version 1)
Quarter: 2021Q1

REPORT INFORMATION
  Report Type: Spontaneous
  Country: NL (occurrence: NL)
  Receive Date: 20210304
  Receipt Date: 20210304
  Transmission Date: 20210420
  Serious: Yes (Other)
  Sender: FDA-Public Use
  Company Number: NL-TEVA-2021-NL-1886113

PATIENT
  Sex: Female
  Weight: 55 kg

DRUGS (2)
  1. LIDOCAINE / BRAND NAME NOT SPECIFIED [Suspect]
     Active Substance: LIDOCAINE
     Indication: ANAESTHESIA
  2. LIDOCAINE / BRAND NAME NOT SPECIFIED [Suspect]
     Active Substance: LIDOCAINE
     Indication: ANAESTHESIA
     Dosage: SINGLE ADMINISTRATION , THERAPY END DATE : ASKED BUT UNKNOWN , UNIT DOSE : 1 DF
     Dates: start: 1996

REACTIONS (1)
  - Anaphylactic reaction [Unknown]
